FAERS Safety Report 23734779 (Version 1)
Quarter: 2024Q2

REPORT INFORMATION
  Report Type: Spontaneous
  Country: FR (occurrence: FR)
  Receive Date: 20240412
  Receipt Date: 20240412
  Transmission Date: 20240716
  Serious: Yes (Hospitalization)
  Sender: FDA-Public Use
  Company Number: None

PATIENT
  Age: 32 Year
  Sex: Female
  Weight: 107 kg

DRUGS (2)
  1. CHORIOGONADOTROPIN ALFA [Suspect]
     Active Substance: CHORIOGONADOTROPIN ALFA
     Indication: Ovulation induction
     Route: 058
     Dates: start: 20230517, end: 20230517
  2. MENOPUR [Suspect]
     Active Substance: FOLLITROPIN\LUTEINIZING HORMONE
     Indication: Controlled ovarian stimulation
     Route: 058
     Dates: start: 20230511, end: 20230516

REACTIONS (5)
  - Oliguria [Recovered/Resolved]
  - Dyspnoea at rest [Recovered/Resolved]
  - Abdominal pain [Recovered/Resolved]
  - Nausea [Recovered/Resolved]
  - Vomiting [Recovered/Resolved]

NARRATIVE: CASE EVENT DATE: 20230519
